FAERS Safety Report 18985570 (Version 1)
Quarter: 2021Q1

REPORT INFORMATION
  Report Type: Spontaneous
  Country: US (occurrence: US)
  Receive Date: 20210309
  Receipt Date: 20210309
  Transmission Date: 20210420
  Serious: No
  Sender: FDA-Public Use
  Company Number: US-AIMMUNE THERAPEUTICS, INC.-2021AIMT00098

PATIENT

DRUGS (1)
  1. PALFORZIA [Suspect]
     Active Substance: PEANUT
     Indication: FOOD ALLERGY
     Dosage: 200 MG, 1X/DAY
     Route: 048

REACTIONS (3)
  - Nausea [Not Recovered/Not Resolved]
  - Stress [Unknown]
  - Therapeutic response unexpected [Recovered/Resolved]
